FAERS Safety Report 14850973 (Version 2)
Quarter: 2018Q2

REPORT INFORMATION
  Report Type: Report from Study
  Country: None (occurrence: FI)
  Receive Date: 20180506
  Receipt Date: 20180606
  Transmission Date: 20180711
  Serious: Yes (Hospitalization, Other)
  Sender: FDA-Public Use
  Company Number: FI-ABBVIE-18K-055-2343797-00

PATIENT
  Age: 79 Year
  Sex: Male

DRUGS (3)
  1. ZINACEF [Concomitant]
     Active Substance: CEFUROXIME SODIUM
     Indication: PRODUCT USED FOR UNKNOWN INDICATION
     Dates: start: 20180415
  2. DUODOPA [Suspect]
     Active Substance: CARBIDOPA\LEVODOPA
     Route: 050
     Dates: start: 2018
  3. DUODOPA [Suspect]
     Active Substance: CARBIDOPA\LEVODOPA
     Indication: PRODUCT USED FOR UNKNOWN INDICATION
     Route: 050
     Dates: start: 2012, end: 20180430

REACTIONS (23)
  - Condition aggravated [Recovering/Resolving]
  - Blood sodium increased [Recovered/Resolved]
  - C-reactive protein increased [Recovered/Resolved]
  - White blood cell count increased [Recovered/Resolved]
  - Mean cell haemoglobin concentration decreased [Recovered/Resolved]
  - Haemoglobin decreased [Not Recovered/Not Resolved]
  - Fall [Unknown]
  - Blood sodium increased [Recovered/Resolved]
  - Blood creatinine decreased [Recovered/Resolved]
  - Blood creatinine decreased [Recovered/Resolved]
  - Enterococcus test positive [Unknown]
  - Specific gravity urine abnormal [Not Recovered/Not Resolved]
  - Pneumonia [Unknown]
  - Blood creatinine decreased [Not Recovered/Not Resolved]
  - Red blood cell count decreased [Not Recovered/Not Resolved]
  - Platelet count increased [Recovered/Resolved]
  - Blood urine present [Not Recovered/Not Resolved]
  - Femoral neck fracture [Unknown]
  - White blood cell count increased [Recovered/Resolved]
  - Intentional medical device removal by patient [Not Recovered/Not Resolved]
  - Red cell distribution width increased [Not Recovered/Not Resolved]
  - Haematocrit decreased [Not Recovered/Not Resolved]
  - Mean cell haemoglobin concentration decreased [Recovered/Resolved]

NARRATIVE: CASE EVENT DATE: 2018
